FAERS Safety Report 7266246-2 (Version None)
Quarter: 2011Q1

REPORT INFORMATION
  Report Type: 
  Country: None (occurrence: None)
  Receive Date: 20110131
  Receipt Date: 20101217
  Transmission Date: 20110831
  Serious: Yes (Hospitalization, Other)
  Sender: FDA-Public Use
  Company Number: US-BAYER-201018313NA

PATIENT
  Sex: Female
  Weight: 65 kg

DRUGS (7)
  1. YAZ [Suspect]
     Route: 048
     Dates: start: 20070901, end: 20090901
  2. PEPTO-BISMOL [Concomitant]
     Indication: CHOLELITHIASIS
     Route: 065
     Dates: start: 20081001, end: 20081201
  3. PEPTO-BISMOL [Concomitant]
     Indication: ABDOMINAL DISCOMFORT
  4. YASMIN [Suspect]
     Indication: PREMENSTRUAL SYNDROME
     Route: 048
  5. LEXAPRO [Concomitant]
     Indication: PRODUCT USED FOR UNKNOWN INDICATION
     Route: 065
     Dates: start: 20070818, end: 20081026
  6. PEPTO-BISMOL [Concomitant]
     Indication: PROPHYLAXIS OF NAUSEA AND VOMITING
  7. YAZ [Suspect]
     Indication: PREMENSTRUAL SYNDROME
     Route: 048
     Dates: start: 20070901, end: 20090901

REACTIONS (7)
  - CHOLELITHIASIS [None]
  - FAT INTOLERANCE [None]
  - NAUSEA [None]
  - ABDOMINAL PAIN UPPER [None]
  - COELIAC DISEASE [None]
  - VOMITING [None]
  - GASTRITIS [None]
